FAERS Safety Report 6118910-6 (Version None)
Quarter: 2009Q1

REPORT INFORMATION
  Report Type: 
  Country: None (occurrence: None)
  Receive Date: 20090316
  Receipt Date: 20090310
  Transmission Date: 20090719
  Serious: Yes (Hospitalization)
  Sender: FDA-Public Use
  Company Number: US-CELGENEUS-163-21880-09011419

PATIENT
  Sex: Male
  Weight: 91.3 kg

DRUGS (11)
  1. REVLIMID [Suspect]
     Route: 048
     Dates: start: 20081215, end: 20090116
  2. REVLIMID [Suspect]
     Route: 048
     Dates: start: 20090119
  3. SYNTHROID [Concomitant]
     Indication: DRUG USE FOR UNKNOWN INDICATION
     Route: 065
  4. FENTANYL-25 [Concomitant]
     Indication: DRUG USE FOR UNKNOWN INDICATION
     Route: 061
  5. FENTANYL-25 [Concomitant]
     Route: 061
     Dates: start: 20090112
  6. FENTANYL-25 [Concomitant]
     Route: 061
     Dates: start: 20090114
  7. OXYCODONE [Concomitant]
     Indication: BREAKTHROUGH PAIN
  8. METAMUCIL [Concomitant]
     Indication: DRUG USE FOR UNKNOWN INDICATION
     Dosage: 4 CAPS
     Route: 065
  9. TYLENOL (CAPLET) [Concomitant]
     Indication: DRUG USE FOR UNKNOWN INDICATION
     Route: 048
  10. GENTAMICIN [Concomitant]
     Indication: DRUG USE FOR UNKNOWN INDICATION
  11. MULTI-VITAMIN [Concomitant]
     Indication: DRUG USE FOR UNKNOWN INDICATION
     Route: 048

REACTIONS (1)
  - PNEUMOTHORAX [None]
